FAERS Safety Report 17107172 (Version 3)
Quarter: 2020Q2

REPORT INFORMATION
  Report Type: Report from Study
  Country: None (occurrence: US)
  Receive Date: 20191203
  Receipt Date: 20200406
  Transmission Date: 20200713
  Serious: Yes (Other)
  Sender: FDA-Public Use
  Company Number: US-ABBVIE-19K-163-3158184-00

PATIENT
  Age: 82 Year
  Sex: Male
  Weight: 77 kg

DRUGS (14)
  1. TREANDA [Concomitant]
     Active Substance: BENDAMUSTINE HYDROCHLORIDE
     Indication: PRODUCT USED FOR UNKNOWN INDICATION
  2. ACYCLOVIR. [Concomitant]
     Active Substance: ACYCLOVIR
     Indication: ANTIVIRAL PROPHYLAXIS
  3. METOPROLOL. [Concomitant]
     Active Substance: METOPROLOL
     Indication: HYPERTENSION
     Dosage: BID
     Route: 048
  4. ACYCLOVIR. [Concomitant]
     Active Substance: ACYCLOVIR
     Indication: ANTIVIRAL PROPHYLAXIS
     Route: 048
  5. AMLODIPINE [Concomitant]
     Active Substance: AMLODIPINE BESYLATE
     Indication: HYPERTENSION
     Route: 048
     Dates: start: 20190816
  6. METOPROLOL. [Concomitant]
     Active Substance: METOPROLOL
     Indication: ANTIVIRAL PROPHYLAXIS
  7. IMBRUVICA [Suspect]
     Active Substance: IBRUTINIB
     Indication: CHRONIC LYMPHOCYTIC LEUKAEMIA
     Dosage: 420 MG, QD
     Route: 065
     Dates: start: 20161115, end: 20190711
  8. AMLODIPINE [Concomitant]
     Active Substance: AMLODIPINE BESYLATE
     Indication: ANTIVIRAL PROPHYLAXIS
  9. OLANZAPINE. [Concomitant]
     Active Substance: OLANZAPINE
     Indication: ANTIVIRAL PROPHYLAXIS
  10. ALBUTEROL. [Concomitant]
     Active Substance: ALBUTEROL
     Indication: ANTIVIRAL PROPHYLAXIS
  11. GABAPENTIN. [Concomitant]
     Active Substance: GABAPENTIN
     Indication: PROPHYLAXIS
     Dosage: 200 MG PO @ HS
     Route: 048
     Dates: start: 20190729
  12. ALBUTEROL. [Concomitant]
     Active Substance: ALBUTEROL
     Indication: EMPHYSEMA
     Dosage: 2 PUFFS Q 6 HRS PRN
  13. OLANZAPINE. [Concomitant]
     Active Substance: OLANZAPINE
     Indication: SLEEP DISORDER THERAPY
     Dosage: 5 MG PO @ HS
     Route: 048
     Dates: start: 20190809
  14. GABAPENTIN. [Concomitant]
     Active Substance: GABAPENTIN
     Indication: ANTIVIRAL PROPHYLAXIS

REACTIONS (1)
  - Cardiomyopathy [Not Recovered/Not Resolved]

NARRATIVE: CASE EVENT DATE: 20190522
